FAERS Safety Report 6109031-7 (Version None)
Quarter: 2009Q1

REPORT INFORMATION
  Report Type: 
  Country: None (occurrence: None)
  Receive Date: 20090310
  Receipt Date: 20090225
  Transmission Date: 20090719
  Serious: Yes (Hospitalization, Other)
  Sender: FDA-Public Use
  Company Number: US-ROCHE-614880

PATIENT
  Sex: Male

DRUGS (2)
  1. PEG-INTERFERON A-2A (RO 25-8310) [Suspect]
     Indication: HEPATITIS C
     Dosage: FORM: PRE FILLED SYRINGE. PATIENT IS IN WEEK 11 OF TREATMENT.
     Route: 065
     Dates: start: 20081212
  2. RIBAPAK [Suspect]
     Indication: HEPATITIS C
     Dosage: DIVIDED DOSES, PATIENT IS IN WEEK 11 OF TREATMENT.
     Route: 065
     Dates: start: 20081212

REACTIONS (6)
  - ABDOMINAL PAIN UPPER [None]
  - EPISTAXIS [None]
  - HAEMOGLOBIN DECREASED [None]
  - RED BLOOD CELL COUNT DECREASED [None]
  - SEPSIS [None]
  - WHITE BLOOD CELL COUNT DECREASED [None]
